FAERS Safety Report 16527259 (Version 1)
Quarter: 2019Q3

REPORT INFORMATION
  Report Type: Report from Study
  Country: US (occurrence: US)
  Receive Date: 20190704
  Receipt Date: 20190704
  Transmission Date: 20191004
  Serious: Yes (Hospitalization)
  Sender: FDA-Public Use
  Company Number: US-HORIZON-KRY-0421-2019

PATIENT
  Age: 59 Year
  Sex: Male

DRUGS (8)
  1. KRYSTEXXA [Suspect]
     Active Substance: PEGLOTICASE
     Indication: GOUT
     Dosage: 8 MG IV EVERY 2 WEEKS
     Route: 042
     Dates: start: 20190516
  2. SOLU-MEDROL [Concomitant]
     Active Substance: METHYLPREDNISOLONE SODIUM SUCCINATE
     Indication: PREMEDICATION
     Route: 042
  3. XARELTO [Concomitant]
     Active Substance: RIVAROXABAN
  4. BENADRYL [Concomitant]
     Active Substance: DIPHENHYDRAMINE HYDROCHLORIDE
     Indication: PREMEDICATION
     Route: 042
  5. METOPROLOL. [Concomitant]
     Active Substance: METOPROLOL
  6. ATORVASTATIN [Concomitant]
     Active Substance: ATORVASTATIN
  7. FUROSEMIDE. [Concomitant]
     Active Substance: FUROSEMIDE
  8. AMIODARONE [Concomitant]
     Active Substance: AMIODARONE

REACTIONS (3)
  - Hypotension [Recovered/Resolved]
  - Chest pain [Recovered/Resolved]
  - Dyspnoea [Recovered/Resolved]

NARRATIVE: CASE EVENT DATE: 20190614
